FAERS Safety Report 18321281 (Version 1)
Quarter: 2020Q3

REPORT INFORMATION
  Report Type: Spontaneous
  Country: DE (occurrence: DE)
  Receive Date: 20200928
  Receipt Date: 20200928
  Transmission Date: 20201103
  Serious: Yes (Hospitalization)
  Sender: FDA-Public Use
  Company Number: DE-TEVA-2020-DE-1831250

PATIENT
  Age: 51 Year
  Sex: Female

DRUGS (1)
  1. IBUPROFEN. [Suspect]
     Active Substance: IBUPROFEN
     Dosage: 400 MG, 2X
     Route: 048
     Dates: start: 20200807

REACTIONS (8)
  - Anaemia [Unknown]
  - General physical health deterioration [Unknown]
  - Haematemesis [Unknown]
  - Abdominal pain [Unknown]
  - Pallor [Unknown]
  - Abdominal pain upper [Unknown]
  - Internal haemorrhage [Unknown]
  - Haematochezia [Unknown]
